FAERS Safety Report 7258618-7 (Version None)
Quarter: 2011Q1

REPORT INFORMATION
  Report Type: 
  Country: None (occurrence: None)
  Receive Date: 20110129
  Receipt Date: 20100502
  Transmission Date: 20110831
  Serious: No
  Sender: FDA-Public Use
  Company Number: US-ABBOTT-09P-163-0586754-00

PATIENT
  Sex: Female

DRUGS (3)
  1. HUMIRA [Suspect]
     Indication: CROHN'S DISEASE
     Route: 058
     Dates: start: 20081001
  2. CIPRO [Concomitant]
     Indication: CROHN'S DISEASE
     Dosage: DAILY
  3. FLAGYL [Concomitant]
     Indication: CROHN'S DISEASE
     Dosage: DAILY

REACTIONS (7)
  - HYPOPHAGIA [None]
  - NAUSEA [None]
  - DRUG DOSE OMISSION [None]
  - MALAISE [None]
  - NIGHT SWEATS [None]
  - INJECTION SITE PAIN [None]
  - CHILLS [None]
